FAERS Safety Report 7667448-3 (Version None)
Quarter: 2011Q3

REPORT INFORMATION
  Report Type: 
  Country: None (occurrence: None)
  Receive Date: 20110806
  Receipt Date: 20110309
  Transmission Date: 20111222
  Serious: No
  Sender: FDA-Public Use
  Company Number: US-ABBOTT-11P-163-0710510-00

PATIENT
  Sex: Female
  Weight: 61.29 kg

DRUGS (4)
  1. NIASPAN [Suspect]
     Route: 048
     Dates: start: 20101101, end: 20110201
  2. ASPIRIN [Concomitant]
     Indication: PRODUCT USED FOR UNKNOWN INDICATION
     Dosage: DAILY WITH NIASPAN COATED
     Route: 048
  3. NIASPAN [Suspect]
     Dosage: DAILY CUT TABLETS IN HALF
     Route: 048
     Dates: start: 20110303, end: 20110306
  4. NIASPAN [Suspect]
     Indication: PRODUCT USED FOR UNKNOWN INDICATION
     Route: 048
     Dates: start: 20110201, end: 20110302

REACTIONS (2)
  - SKIN BURNING SENSATION [None]
  - WRONG TECHNIQUE IN DRUG USAGE PROCESS [None]
